FAERS Safety Report 6589831-X (Version None)
Quarter: 2010Q1

REPORT INFORMATION
  Report Type: 
  Country: None (occurrence: None)
  Receive Date: 20100219
  Receipt Date: 20100209
  Transmission Date: 20100710
  Serious: Yes (Other)
  Sender: FDA-Public Use
  Company Number: US-JNJFOC-20100205203

PATIENT
  Age: 56 Year
  Sex: Female
  Weight: 52.16 kg

DRUGS (3)
  1. TYLENOL (CAPLET) [Suspect]
     Route: 048
  2. TYLENOL (CAPLET) [Suspect]
     Indication: PAIN
     Route: 048
  3. ROLAIDS [Suspect]
     Indication: DRUG USE FOR UNKNOWN INDICATION

REACTIONS (4)
  - GASTROINTESTINAL DISORDER [None]
  - GASTROINTESTINAL INFLAMMATION [None]
  - PRODUCT QUALITY ISSUE [None]
  - WEIGHT DECREASED [None]
